FAERS Safety Report 15576716 (Version 3)
Quarter: 2018Q4

REPORT INFORMATION
  Report Type: Spontaneous
  Country: US (occurrence: US)
  Receive Date: 20181101
  Receipt Date: 20181128
  Transmission Date: 20190205
  Serious: No
  Sender: FDA-Public Use
  Company Number: US-GLAXOSMITHKLINE-US2018GSK192292

PATIENT
  Sex: Female

DRUGS (1)
  1. BREO ELLIPTA [Suspect]
     Active Substance: FLUTICASONE FUROATE\VILANTEROL TRIFENATATE
     Indication: ASTHMA
     Dosage: UNK
     Route: 055
     Dates: end: 201810

REACTIONS (5)
  - Product taste abnormal [Unknown]
  - Nasal oedema [Recovering/Resolving]
  - Sinus disorder [Unknown]
  - Unevaluable event [Unknown]
  - Sinusitis [Recovering/Resolving]
